FAERS Safety Report 22920766 (Version 5)
Quarter: 2025Q1

REPORT INFORMATION
  Report Type: Report from Study
  Country: CA (occurrence: CA)
  Receive Date: 20230908
  Receipt Date: 20250316
  Transmission Date: 20250408
  Serious: Yes (Hospitalization)
  Sender: JOHNSON AND JOHNSON
  Company Number: CA-JNJFOC-20230909214

PATIENT
  Age: 13 Year
  Sex: Male
  Weight: 34 kg

DRUGS (4)
  1. REMICADE [Suspect]
     Active Substance: INFLIXIMAB
     Indication: Crohn^s disease
     Dosage: THE PATIENT WAS PRESCRIBED 5 MG/KG ROUNDED UP TO COMPLETE THE FULL VIAL AT WEEKS 0,2,6 THEN EVERY 6
     Route: 041
     Dates: start: 20230901
  2. REMICADE [Suspect]
     Active Substance: INFLIXIMAB
     Dosage: INCREASING DOSE TO 10 MG/KG ROUNDED UP TO COMPLETE THE FULL VIAL AT WEEKS 2,6 THEN EVERY 4 WEEKS THE
     Route: 041
     Dates: start: 2023
  3. REMICADE [Suspect]
     Active Substance: INFLIXIMAB
     Route: 041
  4. REMICADE [Suspect]
     Active Substance: INFLIXIMAB
     Route: 041

REACTIONS (3)
  - Crohn^s disease [Unknown]
  - Off label use [Unknown]
  - Gastrointestinal inflammation [Unknown]

NARRATIVE: CASE EVENT DATE: 20230101
